FAERS Safety Report 6306084-8 (Version None)
Quarter: 2009Q3

REPORT INFORMATION
  Report Type: 
  Country: None (occurrence: None)
  Receive Date: 20090812
  Receipt Date: 20090707
  Transmission Date: 20100115
  Serious: No
  Sender: FDA-Public Use
  Company Number: US-BAYER-200925752NA

PATIENT
  Age: 27 Year
  Sex: Female
  Weight: 82 kg

DRUGS (1)
  1. MIRENA [Suspect]
     Indication: CONTRACEPTION
     Dosage: CONTINUOUS
     Route: 015
     Dates: start: 20090529

REACTIONS (3)
  - MOOD SWINGS [None]
  - MUSCLE SPASMS [None]
  - POST PROCEDURAL HAEMORRHAGE [None]
